FAERS Safety Report 16406945 (Version 1)
Quarter: 2019Q2

REPORT INFORMATION
  Report Type: Spontaneous
  Country: US (occurrence: US)
  Receive Date: 20190608
  Receipt Date: 20190608
  Transmission Date: 20190711
  Serious: Yes (Death, Life-Threatening, Hospitalization, Other)
  Sender: FDA-Public Use
  Company Number: US-UNITED THERAPEUTICS-UNT-2019-009841

PATIENT
  Age: 52 Year
  Sex: Female
  Weight: 122.99 kg

DRUGS (1)
  1. REMODULIN [Suspect]
     Active Substance: TREPROSTINIL
     Indication: PULMONARY ARTERIAL HYPERTENSION
     Dosage: 0.00875 ?G/KG, CONTINUING
     Route: 058

REACTIONS (2)
  - Death [Fatal]
  - Coma [Not Recovered/Not Resolved]

NARRATIVE: CASE EVENT DATE: 20190602
